FAERS Safety Report 20961735 (Version 5)
Quarter: 2022Q3

REPORT INFORMATION
  Report Type: Report from Study
  Country: CN (occurrence: None)
  Receive Date: 20220615
  Receipt Date: 20220929
  Transmission Date: 20221027
  Serious: Yes (Hospitalization)
  Sender: FDA-Public Use
  Company Number: CN-ROCHE-3116342

PATIENT
  Age: 67 Year
  Sex: Male
  Weight: 56 kg

DRUGS (65)
  1. PLACEBO [Suspect]
     Active Substance: UNSPECIFIED INGREDIENT
     Indication: Non-small cell lung cancer stage IV
     Dosage: ON 17/MAR/2022, MOST RECENT DOSE OF STUDY DRUG?PRIOR TO SAE WAS ADMINISTERED
     Route: 041
     Dates: start: 20220128
  2. BEVACIZUMAB [Suspect]
     Active Substance: BEVACIZUMAB
     Indication: Non-small cell lung cancer stage IV
     Dosage: MOST RECENT DOSE (840 MG) OF STUDY DRUG PRIOR TO AE 11/MAR/2022 ?MOST RECENT DOSE (840 MG) OF STUDY
     Route: 042
     Dates: start: 20220128
  3. CARBOPLATIN [Suspect]
     Active Substance: CARBOPLATIN
     Indication: Non-small cell lung cancer stage IV
     Dosage: MOST RECENT DOSE (570 MG) OF STUDY DRUG PRIOR TO AE 11/MAR/2022 ?MOST RECENT DOSE (560 MG) OF STUDY
     Route: 042
     Dates: start: 20220128
  4. PEMETREXED [Suspect]
     Active Substance: PEMETREXED
     Indication: Non-small cell lung cancer stage IV
     Dosage: MOST RECENT DOSE (770 MG) OF STUDY DRUG PRIOR TO AE 11/MAR/2022 ?MOST RECENT DOSE (745 MG) OF STUDY
     Route: 042
     Dates: start: 20220128
  5. VALSARTAN [Concomitant]
     Active Substance: VALSARTAN
     Dates: start: 202111
  6. FOLIC ACID [Concomitant]
     Active Substance: FOLIC ACID
     Dates: start: 20220121
  7. OXYCODONE [Concomitant]
     Active Substance: OXYCODONE
     Dates: start: 20220128
  8. ACETAMINOPHEN [Concomitant]
     Active Substance: ACETAMINOPHEN
     Dates: start: 20220401, end: 20220401
  9. IBUPROFEN [Concomitant]
     Active Substance: IBUPROFEN
     Dates: start: 20220315, end: 20220426
  10. IBUPROFEN [Concomitant]
     Active Substance: IBUPROFEN
     Dates: start: 20220401
  11. IBUPROFEN [Concomitant]
     Active Substance: IBUPROFEN
     Dates: start: 20220201, end: 20220216
  12. IBUPROFEN [Concomitant]
     Active Substance: IBUPROFEN
     Dates: start: 20220222, end: 20220308
  13. DEXAMETHASONE [Concomitant]
     Active Substance: DEXAMETHASONE
     Route: 048
     Dates: start: 20220331, end: 20220331
  14. DEXAMETHASONE [Concomitant]
     Active Substance: DEXAMETHASONE
     Route: 048
     Dates: start: 20220424, end: 20220426
  15. DEXAMETHASONE [Concomitant]
     Active Substance: DEXAMETHASONE
     Route: 048
     Dates: start: 20220516, end: 20220516
  16. DEXAMETHASONE [Concomitant]
     Active Substance: DEXAMETHASONE
     Dates: start: 20220217, end: 20220217
  17. DEXAMETHASONE [Concomitant]
     Active Substance: DEXAMETHASONE
     Dates: start: 20220310, end: 20220310
  18. DEXAMETHASONE [Concomitant]
     Active Substance: DEXAMETHASONE
     Route: 048
     Dates: start: 20220218, end: 20220219
  19. DEXAMETHASONE [Concomitant]
     Active Substance: DEXAMETHASONE
     Route: 048
     Dates: start: 20220311, end: 20220312
  20. DEXAMETHASONE [Concomitant]
     Active Substance: DEXAMETHASONE
     Route: 048
     Dates: start: 20220401, end: 20220402
  21. DEXAMETHASONE [Concomitant]
     Active Substance: DEXAMETHASONE
     Route: 048
     Dates: start: 20220517, end: 20220518
  22. FOSAPREPITANT DIMEGLUMINE [Concomitant]
     Active Substance: FOSAPREPITANT DIMEGLUMINE
     Dates: start: 20220401, end: 20220401
  23. FOSAPREPITANT DIMEGLUMINE [Concomitant]
     Active Substance: FOSAPREPITANT DIMEGLUMINE
     Dates: start: 20220425, end: 20220425
  24. FOSAPREPITANT DIMEGLUMINE [Concomitant]
     Active Substance: FOSAPREPITANT DIMEGLUMINE
     Dates: start: 20220517, end: 20220517
  25. FOSAPREPITANT DIMEGLUMINE [Concomitant]
     Active Substance: FOSAPREPITANT DIMEGLUMINE
     Dates: start: 20220218, end: 20220218
  26. FOSAPREPITANT DIMEGLUMINE [Concomitant]
     Active Substance: FOSAPREPITANT DIMEGLUMINE
     Dates: start: 20220311, end: 20220311
  27. PREDNISOLONE [Concomitant]
     Active Substance: PREDNISOLONE
     Route: 042
     Dates: start: 20220401, end: 20220401
  28. PREDNISOLONE [Concomitant]
     Active Substance: PREDNISOLONE
     Route: 042
     Dates: start: 20220425, end: 20220425
  29. PREDNISOLONE [Concomitant]
     Active Substance: PREDNISOLONE
     Route: 042
     Dates: start: 20220517, end: 20220517
  30. PREDNISOLONE [Concomitant]
     Active Substance: PREDNISOLONE
     Route: 042
     Dates: start: 20220218, end: 20220218
  31. PREDNISOLONE [Concomitant]
     Active Substance: PREDNISOLONE
     Route: 042
     Dates: start: 20220311, end: 20220311
  32. TROPISETRON HYDROCHLORIDE [Concomitant]
     Active Substance: TROPISETRON HYDROCHLORIDE
     Dates: start: 20220401, end: 20220401
  33. TROPISETRON HYDROCHLORIDE [Concomitant]
     Active Substance: TROPISETRON HYDROCHLORIDE
     Dates: start: 20220425, end: 20220425
  34. TROPISETRON HYDROCHLORIDE [Concomitant]
     Active Substance: TROPISETRON HYDROCHLORIDE
     Dates: start: 20220517, end: 20220517
  35. TROPISETRON HYDROCHLORIDE [Concomitant]
     Active Substance: TROPISETRON HYDROCHLORIDE
     Dates: start: 20220218, end: 20220218
  36. TROPISETRON HYDROCHLORIDE [Concomitant]
     Active Substance: TROPISETRON HYDROCHLORIDE
     Dates: start: 20220311, end: 20220311
  37. FUROSEMIDE [Concomitant]
     Active Substance: FUROSEMIDE
     Dates: start: 20220401, end: 20220401
  38. FUROSEMIDE [Concomitant]
     Active Substance: FUROSEMIDE
     Dates: start: 20220218, end: 20220218
  39. FUROSEMIDE [Concomitant]
     Active Substance: FUROSEMIDE
     Dates: start: 20220311, end: 20220311
  40. GLUTATHIONE REDUCED [Concomitant]
     Dates: start: 20220401, end: 20220401
  41. GLUTATHIONE REDUCED [Concomitant]
     Dates: start: 20220425, end: 20220425
  42. GLUTATHIONE REDUCED [Concomitant]
     Dates: start: 20220517, end: 20220517
  43. GLUTATHIONE REDUCED [Concomitant]
     Dates: start: 20220603, end: 20220624
  44. GLUTATHIONE REDUCED [Concomitant]
     Dates: start: 20220218, end: 20220218
  45. GLUTATHIONE REDUCED [Concomitant]
     Dates: start: 20220311, end: 20220311
  46. OMEPRAZOLE SODIUM [Concomitant]
     Active Substance: OMEPRAZOLE SODIUM
     Dates: start: 20220401, end: 20220401
  47. OMEPRAZOLE SODIUM [Concomitant]
     Active Substance: OMEPRAZOLE SODIUM
     Dates: start: 20220425, end: 20220425
  48. OMEPRAZOLE SODIUM [Concomitant]
     Active Substance: OMEPRAZOLE SODIUM
     Dates: start: 20220517, end: 20220517
  49. OMEPRAZOLE SODIUM [Concomitant]
     Active Substance: OMEPRAZOLE SODIUM
     Dates: start: 20220218, end: 20220218
  50. OMEPRAZOLE SODIUM [Concomitant]
     Active Substance: OMEPRAZOLE SODIUM
     Dates: start: 20220311, end: 20220311
  51. OXYCONTIN CONTROLLED RELEASE [Concomitant]
     Dates: start: 20220401
  52. LEUCOGEN TABLETS [Concomitant]
     Dates: start: 20220407
  53. LEUCOGEN TABLETS [Concomitant]
     Dates: start: 20220209, end: 20220218
  54. LEUCOGEN TABLETS [Concomitant]
     Dates: start: 20220225, end: 20220303
  55. LEUCOGEN TABLETS [Concomitant]
     Dates: start: 20220311, end: 20220316
  56. NIFEREX [IRON POLYSACCHARIDE COMPLEX] [Concomitant]
     Dates: start: 20220414
  57. LACTULOSE [Concomitant]
     Active Substance: LACTULOSE
     Route: 048
     Dates: start: 20220425
  58. FAMOTIDINE [Concomitant]
     Active Substance: FAMOTIDINE
     Dates: start: 20220603, end: 20220624
  59. AMINO ACIDS, SOURCE UNSPECIFIED [Concomitant]
     Active Substance: AMINO ACIDS, SOURCE UNSPECIFIED
     Dates: start: 20220603, end: 20220624
  60. ALANYL GLUTAMINE [Concomitant]
     Active Substance: ALANYL GLUTAMINE
     Dates: start: 20220603, end: 20220624
  61. GLYCERIN [Concomitant]
     Active Substance: GLYCERIN
     Dates: start: 20220607, end: 20220607
  62. MORPHINE HYDROCHLORIDE [Concomitant]
     Active Substance: MORPHINE HYDROCHLORIDE
     Dates: start: 20220608, end: 20220608
  63. PACLITAXEL [Concomitant]
     Active Substance: PACLITAXEL
     Dates: start: 20220614
  64. TISLELIZUMAB [Concomitant]
     Active Substance: TISLELIZUMAB
     Dates: start: 20220614
  65. CATEQUENTINIB [Concomitant]
     Active Substance: CATEQUENTINIB
     Dates: start: 20220614

REACTIONS (1)
  - Anaemia [Not Recovered/Not Resolved]

NARRATIVE: CASE EVENT DATE: 20220316
